FAERS Safety Report 6323182-3 (Version None)
Quarter: 2009Q3

REPORT INFORMATION
  Report Type: 
  Country: None (occurrence: None)
  Receive Date: 20090824
  Receipt Date: 20090331
  Transmission Date: 20100115
  Serious: No
  Sender: FDA-Public Use
  Company Number: US-ABBOTT-09P-163-0565878-00

PATIENT
  Sex: Female
  Weight: 72.64 kg

DRUGS (6)
  1. NIASPAN [Suspect]
     Indication: BLOOD CHOLESTEROL INCREASED
     Route: 048
     Dates: start: 20090324
  2. LOVAZA [Concomitant]
     Indication: MEDICAL DIET
     Dosage: UNSURE OF STRENGTH
     Route: 048
  3. PRILOSEC [Concomitant]
     Indication: GASTRITIS
     Route: 048
  4. MULTI-VITAMIN [Concomitant]
     Indication: VITAMIN SUPPLEMENTATION
     Route: 048
  5. CALCIUM WITH VITAMIN D [Concomitant]
     Indication: MINERAL SUPPLEMENTATION
     Route: 048
  6. ASPIRIN [Concomitant]
     Indication: CEREBROVASCULAR ACCIDENT PROPHYLAXIS
     Route: 048
     Dates: start: 19990101

REACTIONS (3)
  - CHILLS [None]
  - DYSPEPSIA [None]
  - NAUSEA [None]
